FAERS Safety Report 9495818 (Version 1)
Quarter: 2013Q3

REPORT INFORMATION
  Report Type: Spontaneous
  Country: FR (occurrence: FR)
  Receive Date: 20130903
  Receipt Date: 20130903
  Transmission Date: 20140515
  Serious: Yes (Death, Hospitalization)
  Sender: FDA-Public Use
  Company Number: FR-VERTEX PHARMACEUTICALS INC-2013-009226

PATIENT
  Age: 75 Year
  Sex: Female

DRUGS (12)
  1. INCIVO [Suspect]
     Indication: HEPATITIS C
     Dosage: 750 MG, TID
     Route: 048
     Dates: start: 20121011, end: 20130121
  2. PEGINTERFERON ALFA 2A [Suspect]
     Indication: HEPATITIS C
     Dosage: 180 ?G, QW
     Route: 058
     Dates: start: 20121011, end: 20130211
  3. RIBAVIRIN [Suspect]
     Indication: HEPATITIS C
     Dosage: 400 MG, BID
     Route: 048
     Dates: start: 20121011, end: 20121125
  4. RIBAVIRIN [Suspect]
     Dosage: 200 MG, TID
     Route: 048
     Dates: start: 20121126, end: 20130211
  5. SMECTA [Concomitant]
     Indication: DIARRHOEA
     Dosage: DOSAGE FORM: UNSPECIFIED
     Route: 048
     Dates: start: 20121128
  6. BEPANTHENE [Concomitant]
     Indication: ALOPECIA
     Dosage: 100 MG, TID
     Route: 048
     Dates: start: 20121107
  7. CALCIUM FOLINATE [Concomitant]
     Indication: PROPHYLAXIS
     Dosage: 5 MG, QD
     Route: 048
     Dates: start: 20121107
  8. CHOLECALCIFEROL [Concomitant]
     Indication: PROPHYLAXIS
     Dosage: 100000 IU, 3XMONTH
     Route: 048
     Dates: start: 20121011
  9. DEXERYL [Concomitant]
     Indication: PROPHYLAXIS
     Dosage: 50 UNITS, NOT SPECIFIED
     Route: 061
     Dates: start: 20121011
  10. NEORECORMON [Concomitant]
     Indication: ANAEMIA
     Dosage: 300 UNK, QW
     Route: 058
     Dates: start: 20121128
  11. PARACETAMOL [Concomitant]
     Dosage: 1 G, TID
     Route: 048
     Dates: start: 20121011
  12. BIOTIN [Concomitant]
     Dosage: 5 MG, TID
     Route: 048
     Dates: start: 20121107

REACTIONS (3)
  - Hepatic cancer [Fatal]
  - Septic shock [Recovered/Resolved]
  - Pyelonephritis [Unknown]
